FAERS Safety Report 6847428-8 (Version None)
Quarter: 2010Q3

REPORT INFORMATION
  Report Type: 
  Country: None (occurrence: None)
  Receive Date: 20100716
  Receipt Date: 20100707
  Transmission Date: 20110219
  Serious: Yes (Other)
  Sender: FDA-Public Use
  Company Number: BR-ASTRAZENECA-2010SE31748

PATIENT
  Age: 83 Year
  Sex: Female
  Weight: 22.2 kg

DRUGS (3)
  1. ATACAND [Suspect]
     Route: 048
     Dates: start: 20050101
  2. GEMIFLOXACIN MESYLATE [Suspect]
     Route: 048
     Dates: start: 20100629, end: 20100629
  3. CLOPIDOGREL [Concomitant]
     Route: 048
     Dates: start: 20050101

REACTIONS (3)
  - DYSPNOEA [None]
  - GENERALISED ERYTHEMA [None]
  - OEDEMA [None]
